FAERS Safety Report 5296148-2 (Version None)
Quarter: 2007Q2

REPORT INFORMATION
  Report Type: 
  Country: None (occurrence: None)
  Receive Date: 20070406
  Receipt Date: 20070326
  Transmission Date: 20071010
  Serious: Yes (Death)
  Sender: FDA-Public Use
  Company Number: 2007SP005772

PATIENT
  Age: 50 Year
  Sex: Male

DRUGS (2)
  1. TEMOZOLOMIDE (S-P)  (TEMOZOLOMIDE) [Suspect]
     Indication: METASTASES TO CENTRAL NERVOUS SYSTEM
     Dosage: 150 MG/M2; QD; PO
     Route: 048
  2. LOMUSTINE (LOMUSTINE) [Suspect]
     Indication: METASTASES TO CENTRAL NERVOUS SYSTEM
     Dosage: 60 MG/M2; QD; PO
     Route: 048

REACTIONS (2)
  - HAEMORRHAGE [None]
  - THROMBOCYTOPENIA [None]
